FAERS Safety Report 6723543-4 (Version None)
Quarter: 2010Q2

REPORT INFORMATION
  Report Type: 
  Country: None (occurrence: None)
  Receive Date: 20100511
  Receipt Date: 20100430
  Transmission Date: 20101027
  Serious: Yes (Other)
  Sender: FDA-Public Use
  Company Number: 2010SP025372

PATIENT
  Age: 40 Year
  Sex: Female

DRUGS (6)
  1. MIRTAZAPINE [Suspect]
     Indication: DEPRESSION
     Dosage: 15 MG;QD;PO
     Route: 048
  2. FLUVOXAMINE MALEATE [Concomitant]
  3. ZOLPIDEM TARTRATE [Concomitant]
  4. FLUNITRAZEPAM [Concomitant]
  5. ETHYL LOFLAZEPATE [Concomitant]
  6. PAXIL [Concomitant]

REACTIONS (4)
  - ACTIVATION SYNDROME [None]
  - AKATHISIA [None]
  - NERVOUSNESS [None]
  - RESTLESSNESS [None]
